FAERS Safety Report 14587047 (Version 1)
Quarter: 2018Q1

REPORT INFORMATION
  Report Type: Spontaneous
  Country: FR (occurrence: FR)
  Receive Date: 20180301
  Receipt Date: 20180301
  Transmission Date: 20180509
  Serious: Yes (Hospitalization, Other)
  Sender: FDA-Public Use
  Company Number: FR-AUROBINDO-AUR-APL-2018-010348

PATIENT

DRUGS (2)
  1. SINTROM [Interacting]
     Active Substance: ACENOCOUMAROL
     Indication: THROMBOSIS PROPHYLAXIS
     Dosage: 1.25 DOSAGE FORM, ONCE A DAY (ALTERNATING 1.5 DF DAILY/ 1.25DF EVERY OTHER DAY AT 8HPM () )
     Dates: start: 19880101, end: 20180201
  2. KETOPROFEN. [Suspect]
     Active Substance: KETOPROFEN
     Indication: BACK PAIN
     Dosage: 200 MILLIGRAM, ONCE A DAY
     Route: 065
     Dates: start: 20180127, end: 20180130

REACTIONS (3)
  - Labelled drug-drug interaction medication error [Recovered/Resolved]
  - Faeces discoloured [Unknown]
  - International normalised ratio increased [Recovered/Resolved]

NARRATIVE: CASE EVENT DATE: 20180127
